FAERS Safety Report 17853297 (Version 1)
Quarter: 2020Q2

REPORT INFORMATION
  Report Type: Report from Study
  Country: None (occurrence: US)
  Receive Date: 20200603
  Receipt Date: 20200603
  Transmission Date: 20200714
  Serious: Yes (Other)
  Sender: FDA-Public Use
  Company Number: US-ABBVIE-20K-163-3425507-00

PATIENT
  Age: 55 Year
  Sex: Male
  Weight: 76.27 kg

DRUGS (1)
  1. MAVYRET [Suspect]
     Active Substance: GLECAPREVIR\PIBRENTASVIR
     Indication: HEPATITIS C
     Dosage: 8WEEK TREAT WILL BE DONE IN 4 DAYS.
     Route: 048

REACTIONS (4)
  - Electrocardiogram abnormal [Not Recovered/Not Resolved]
  - Arterial occlusive disease [Not Recovered/Not Resolved]
  - Chest pain [Unknown]
  - Heart rate increased [Unknown]

NARRATIVE: CASE EVENT DATE: 20200526
